FAERS Safety Report 9302944 (Version 3)
Quarter: 2014Q1

REPORT INFORMATION
  Report Type: Spontaneous
  Country: JP (occurrence: JP)
  Receive Date: 20130522
  Receipt Date: 20140127
  Transmission Date: 20141002
  Serious: Yes (Hospitalization, Other)
  Sender: FDA-Public Use
  Company Number: JP-NOVOPROD-356265

PATIENT
  Age: 11 Year
  Sex: Male
  Weight: 40 kg

DRUGS (4)
  1. NORDITROPIN FLEXPROCHU 10 MG/ML [Suspect]
     Indication: GROWTH HORMONE DEFICIENCY
     Dosage: 3.2MG-5.6MG PER WEEK
     Route: 058
     Dates: start: 20061211, end: 20110902
  2. LEUPLIN [Suspect]
     Indication: PRECOCIOUS PUBERTY
     Dosage: 0.7ML PER 4 WEEKS
     Route: 058
     Dates: start: 20110526, end: 20110902
  3. THYRADIN S [Suspect]
     Indication: HYPOTHYROIDISM
     Dosage: 25 UG, QD
     Route: 048
     Dates: start: 20100415, end: 20110915
  4. PERSANTIN [Concomitant]
     Indication: NEPHRITIS
     Dosage: 100 MG, QD
     Route: 048
     Dates: start: 200605, end: 200612

REACTIONS (1)
  - Myelodysplastic syndrome [Not Recovered/Not Resolved]
